FAERS Safety Report 6416827-0 (Version None)
Quarter: 2009Q4

REPORT INFORMATION
  Report Type: 
  Country: None (occurrence: None)
  Receive Date: 20091027
  Receipt Date: 20091013
  Transmission Date: 20100525
  Serious: Yes (Hospitalization)
  Sender: FDA-Public Use
  Company Number: FR-MYLANLABS-2009S1017859

PATIENT
  Age: 3 Month
  Sex: Male

DRUGS (2)
  1. HYDROCHLOROTHIAZIDE [Suspect]
     Indication: NEPHROGENIC DIABETES INSIPIDUS
     Dosage: 2 MG/KG/DAY IN 2 DIVIDED DOSES
  2. INDOMETHACIN [Suspect]
     Indication: NEPHROGENIC DIABETES INSIPIDUS
     Dosage: 2 MG/KG/DAY IN 2 DIVIDED DOSES

REACTIONS (5)
  - HYPONATRAEMIA [None]
  - OEDEMA [None]
  - SOMNOLENCE [None]
  - STATUS EPILEPTICUS [None]
  - WATER INTOXICATION [None]
